FAERS Safety Report 13121058 (Version 1)
Quarter: 2017Q1

REPORT INFORMATION
  Report Type: Other
  Country: US (occurrence: US)
  Receive Date: 20170117
  Receipt Date: 20170117
  Transmission Date: 20170428
  Serious: Yes (Death)
  Sender: FDA-Public Use
  Company Number: US-OSMOTICA_PHARMACEUTICAL_US_LLC-POI0573201700004

PATIENT
  Age: 69 Year
  Sex: Female

DRUGS (12)
  1. VORTIOXETINE [Suspect]
     Active Substance: VORTIOXETINE
     Dates: end: 2015
  2. ALPRAZOLAM. [Suspect]
     Active Substance: ALPRAZOLAM
     Dates: end: 2015
  3. DIVIGEL [Suspect]
     Active Substance: ESTRADIOL
     Dates: end: 2015
  4. TOPIRAMATE. [Suspect]
     Active Substance: TOPIRAMATE
     Dates: end: 2015
  5. ACETAMINOPHEN WITH OXYCODONE [Suspect]
     Active Substance: ACETAMINOPHEN\OXYCODONE HYDROCHLORIDE
     Dates: end: 2015
  6. QUETIAPINE. [Suspect]
     Active Substance: QUETIAPINE
     Dates: end: 2015
  7. PROPRANOLOL [Suspect]
     Active Substance: PROPRANOLOL HYDROCHLORIDE
     Dates: end: 2015
  8. LEVOMILNACIPRAN [Suspect]
     Active Substance: LEVOMILNACIPRAN
     Dates: end: 2015
  9. VILAZODONE [Suspect]
     Active Substance: VILAZODONE
     Dates: end: 2015
  10. LEVOTHYROXIN [Suspect]
     Active Substance: LEVOTHYROXINE
     Dates: end: 2015
  11. DESVENLAFAXINE. [Suspect]
     Active Substance: DESVENLAFAXINE
     Dates: end: 2015
  12. FISH OIL [Suspect]
     Active Substance: FISH OIL
     Dates: end: 2015

REACTIONS (1)
  - Completed suicide [Fatal]

NARRATIVE: CASE EVENT DATE: 2015
